FAERS Safety Report 23097260 (Version 1)
Quarter: 2023Q4

REPORT INFORMATION
  Report Type: Spontaneous
  Country: US (occurrence: None)
  Receive Date: 20231019
  Receipt Date: 20231019
  Transmission Date: 20240109
  Serious: Yes (Hospitalization)
  Sender: FDA-Public Use
  Company Number: None

PATIENT
  Age: 75 Year
  Sex: Male
  Weight: 96 kg

DRUGS (1)
  1. RIVAROXABAN [Suspect]
     Active Substance: RIVAROXABAN
     Dates: start: 20190702

REACTIONS (7)
  - Gastrointestinal haemorrhage [None]
  - Hyperkalaemia [None]
  - Lactic acidosis [None]
  - Acute kidney injury [None]
  - Dehydration [None]
  - Hyperglycaemia [None]
  - Pneumonia [None]

NARRATIVE: CASE EVENT DATE: 20230222
